FAERS Safety Report 25917197 (Version 1)
Quarter: 2025Q4

REPORT INFORMATION
  Report Type: Report from Study
  Country: GB (occurrence: GB)
  Receive Date: 20251014
  Receipt Date: 20251014
  Transmission Date: 20260118
  Serious: Yes (Other)
  Sender: TEVA
  Company Number: GB-TEVA-VS-3380129

PATIENT
  Age: 63 Year
  Sex: Female

DRUGS (1)
  1. AJOVY [Suspect]
     Active Substance: FREMANEZUMAB-VFRM
     Indication: Migraine
     Dosage: AJOVY 225MG/1.5ML PFP 3
     Route: 058

REACTIONS (4)
  - Musculoskeletal disorder [Not Recovered/Not Resolved]
  - Drug dose omission by device [Unknown]
  - Device leakage [Unknown]
  - Device defective [Unknown]
